FAERS Safety Report 15832795 (Version 1)
Quarter: 2019Q1

REPORT INFORMATION
  Report Type: Spontaneous
  Country: US (occurrence: US)
  Receive Date: 20190114
  Receipt Date: 20190114
  Transmission Date: 20190417
  Serious: No
  Sender: FDA-Public Use
  Company Number: None

PATIENT
  Age: 32 Year
  Sex: Male

DRUGS (2)
  1. DEXAMETHASONE. [Concomitant]
     Active Substance: DEXAMETHASONE
  2. TEMOZOLOMIDE 140MG CAP [Suspect]
     Active Substance: TEMOZOLOMIDE
     Dates: start: 20181203

REACTIONS (1)
  - Product dispensing error [None]

NARRATIVE: CASE EVENT DATE: 20181220
